FAERS Safety Report 9922671 (Version 3)
Quarter: 2014Q2

REPORT INFORMATION
  Report Type: Report from Study
  Country: CA (occurrence: CA)
  Receive Date: 20140225
  Receipt Date: 20140403
  Transmission Date: 20141212
  Serious: Yes (Other)
  Sender: FDA-Public Use
  Company Number: CA-ABBVIE-12P-028-1003422-00

PATIENT
  Sex: Male

DRUGS (3)
  1. HUMIRA [Suspect]
     Indication: RHEUMATOID ARTHRITIS
     Dosage: LATEST DOSE: 24-OCT-2012
     Route: 058
     Dates: start: 20090217
  2. HUMIRA [Suspect]
     Dosage: LATEST DOSE: 24-OCT-2012
     Route: 058
     Dates: start: 2013, end: 2013
  3. HUMIRA [Suspect]
     Dosage: LATEST DOSE: 24-OCT-2012
     Route: 058
     Dates: start: 2013

REACTIONS (5)
  - Joint instability [Recovered/Resolved]
  - Joint dislocation [Recovered/Resolved]
  - Joint destruction [Unknown]
  - Rheumatoid arthritis [Unknown]
  - Injection site pain [Unknown]
